FAERS Safety Report 8438305-X (Version None)
Quarter: 2012Q2

REPORT INFORMATION
  Report Type: 
  Country: None (occurrence: None)
  Receive Date: 20120614
  Receipt Date: 20120604
  Transmission Date: 20120825
  Serious: Yes (Hospitalization)
  Sender: FDA-Public Use
  Company Number: US-BAXTER-2012BAX008187

PATIENT
  Age: 24 Year
  Sex: Female

DRUGS (7)
  1. BLEOMYCIN SULFATE [Suspect]
     Indication: SMALL CELL CARCINOMA
     Route: 042
  2. VINBLASTINE SULFATE [Suspect]
     Indication: SMALL CELL CARCINOMA
     Route: 042
  3. CISPLATIN [Suspect]
     Indication: SMALL CELL CARCINOMA
     Route: 042
  4. ETOPOSIDE [Suspect]
     Indication: SMALL CELL CARCINOMA
     Route: 042
  5. DOXORUBICIN HCL [Suspect]
     Indication: SMALL CELL CARCINOMA
     Route: 042
  6. CYCLOPHOSPHAMIDE [Suspect]
     Indication: SMALL CELL CARCINOMA
     Route: 042
  7. PEGFILGRASTIM [Concomitant]
     Indication: PROPHYLAXIS

REACTIONS (3)
  - MUCOSAL INFLAMMATION [None]
  - PANCYTOPENIA [None]
  - CELLULITIS [None]
